FAERS Safety Report 9706184 (Version 1)
Quarter: 2013Q4

REPORT INFORMATION
  Report Type: Spontaneous
  Country: US (occurrence: US)
  Receive Date: 20131124
  Receipt Date: 20131124
  Transmission Date: 20140711
  Serious: No
  Sender: FDA-Public Use
  Company Number: US-009507513-1311USA004838

PATIENT
  Age: 35 Year
  Sex: Female

DRUGS (1)
  1. NUVARING [Suspect]
     Indication: CONTRACEPTION
     Dosage: 1 RING, 3 WEEKS IN, 1 WEEK OUT
     Route: 067
     Dates: start: 20131101

REACTIONS (1)
  - Menorrhagia [Not Recovered/Not Resolved]
